FAERS Safety Report 21110710 (Version 2)
Quarter: 2022Q3

REPORT INFORMATION
  Report Type: Spontaneous
  Country: US (occurrence: US)
  Receive Date: 20220721
  Receipt Date: 20220726
  Transmission Date: 20221027
  Serious: Yes (Other)
  Sender: FDA-Public Use
  Company Number: US-AURINIA PHARMACEUTICALS INC.-AUR-002000

PATIENT
  Sex: Female

DRUGS (2)
  1. LUPKYNIS [Suspect]
     Active Substance: VOCLOSPORIN
     Indication: Lupus nephritis
     Dosage: 23.7 MILLIGRAM, BID
     Route: 048
     Dates: start: 20211007
  2. PREDNISONE [Concomitant]
     Active Substance: PREDNISONE
     Indication: Product used for unknown indication

REACTIONS (10)
  - Angina pectoris [Unknown]
  - Vasodilatation [Unknown]
  - Insomnia [Unknown]
  - Cyst [Unknown]
  - Acrochordon [Unknown]
  - Feeling hot [Unknown]
  - Blood cholesterol increased [Unknown]
  - Blood pressure abnormal [Unknown]
  - Pyrexia [Unknown]
  - Tremor [Unknown]
